FAERS Safety Report 5802540-7 (Version None)
Quarter: 2008Q3

REPORT INFORMATION
  Report Type: 
  Country: None (occurrence: None)
  Receive Date: 20080701
  Receipt Date: 20070827
  Transmission Date: 20090109
  Serious: Yes (Other)
  Sender: FDA-Public Use
  Company Number: 07-001766

PATIENT
  Age: 20 Year
  Sex: Female
  Weight: 58 kg

DRUGS (4)
  1. ESTROSTEP FE [Suspect]
     Indication: CONTRACEPTION
     Dosage: 20-30-35/1000 UG, ORAL
     Route: 048
     Dates: start: 20060101
  2. THIAMINE (THIAMINE) [Concomitant]
  3. B COMPLEX /00212701/ [Concomitant]
  4. (NICOTINAMIDE, PYRIDOXINE HYDROCHLORIDE, RIBOFLAVIN, THIAMINE HYDROCHL [Concomitant]

REACTIONS (8)
  - BLINDNESS [None]
  - CHEST DISCOMFORT [None]
  - DIPLOPIA [None]
  - DIZZINESS [None]
  - HEART RATE INCREASED [None]
  - OEDEMA PERIPHERAL [None]
  - PALPITATIONS [None]
  - SKIN DISCOLOURATION [None]
